FAERS Safety Report 8033224-5 (Version None)
Quarter: 2011Q4

REPORT INFORMATION
  Report Type: 
  Country: None (occurrence: None)
  Receive Date: 20111202
  Receipt Date: 20101109
  Transmission Date: 20120403
  Serious: Yes (Other)
  Sender: FDA-Public Use
  Company Number: WAES 0807USA05410

PATIENT
  Age: 61 Year
  Sex: Female
  Weight: 68.0396 kg

DRUGS (1)
  1. FOSAMAX [Suspect]
     Indication: OSTEOPOROSIS
     Dosage: 70 MG/WKY/PO
     Route: 048
     Dates: start: 20030627, end: 20071003

REACTIONS (11)
  - CYSTOCELE [None]
  - URINARY INCONTINENCE [None]
  - ORAL TORUS [None]
  - RHEUMATOID ARTHRITIS [None]
  - OSTEOARTHRITIS [None]
  - RECTOCELE [None]
  - TENOSYNOVITIS STENOSANS [None]
  - BURSITIS [None]
  - OSTEONECROSIS OF JAW [None]
  - HAEMATURIA [None]
  - SLEEP DISORDER [None]
